FAERS Safety Report 10084404 (Version 2)
Quarter: 2014Q2

REPORT INFORMATION
  Report Type: Spontaneous
  Country: US (occurrence: US)
  Receive Date: 20140417
  Receipt Date: 20140417
  Transmission Date: 20141212
  Serious: Yes (Congenital Anomaly)
  Sender: FDA-Public Use
  Company Number: US-PFIZER INC-2014107835

PATIENT
  Sex: Male

DRUGS (23)
  1. IBUPROFEN [Suspect]
     Dosage: 800 MG, UNK
     Route: 064
     Dates: start: 20020901
  2. ZOLOFT [Suspect]
     Indication: ANXIETY
     Dosage: DOSAGE FORM: TABLETS
     Route: 064
     Dates: start: 20010920, end: 20021010
  3. ZOLOFT [Suspect]
     Indication: DEPRESSION
     Route: 064
  4. DOXEPIN HCL [Suspect]
     Dosage: DOSAGE FORM: CAPSULE
     Route: 064
     Dates: start: 20020404, end: 20021114
  5. HYDROXYZINE PAMOATE [Suspect]
     Dosage: DOSAGE FORM: CAPSULE
     Route: 064
     Dates: start: 20030211, end: 20030606
  6. ZITHROMAX [Suspect]
     Dosage: DOSAGE FORM: UNSPECIFIED
     Route: 064
     Dates: start: 20030226
  7. SPIRONOLACTONE [Suspect]
     Dosage: DOSAGE FORM: UNSPECIFIED
     Route: 064
     Dates: start: 20020617, end: 20021114
  8. AMOXICILLIN [Suspect]
     Indication: FURUNCLE
     Dosage: DOSAGE FORM: UNSPECIFIED
     Route: 064
     Dates: start: 20020518, end: 20030204
  9. AMITRIPTYLINE HYDROCHLORIDE [Suspect]
     Dosage: DOSAGE FORM: UNSPECIFIED
     Route: 064
     Dates: start: 20011105, end: 20021114
  10. PHENAZOPYRIDINE [Suspect]
     Dosage: DOSAGE FORM: UNSPECIFIED
     Route: 064
     Dates: start: 20021230
  11. BACTRIM [Suspect]
     Dosage: DOSAGE FORM: UNSPECIFIED
     Route: 064
     Dates: start: 20021212
  12. TOPAMAX [Suspect]
     Indication: MIGRAINE
     Dosage: MATERNAL DOSING
     Route: 064
     Dates: start: 20020104, end: 20020322
  13. TOPAMAX [Suspect]
     Indication: HEADACHE
     Dosage: 100 MG, UNK
     Route: 064
     Dates: start: 20020502, end: 20021010
  14. TOPAMAX [Suspect]
     Indication: ANXIETY
  15. TOPAMAX [Suspect]
     Indication: DEPRESSION
  16. MAXALT [Suspect]
     Indication: MIGRAINE
     Dosage: DOSAGE FORM: TABLETS
     Route: 064
  17. MECLIZINE [Suspect]
     Dosage: DOSAGE FORM: TABLET
     Route: 064
     Dates: start: 20030204
  18. ZYRTEC [Suspect]
     Dosage: 10 MG, UNK
     Route: 064
     Dates: start: 20001116, end: 20030224
  19. PRIMACARE [Suspect]
     Dosage: UNK
     Route: 064
     Dates: start: 20021219
  20. ERY-TAB [Suspect]
     Dosage: DOSAGE FORM: TABLET
     Route: 064
     Dates: start: 20010920, end: 20021114
  21. FERROUS SULFATE [Concomitant]
     Dosage: DOSAGE FORM: TABLET
     Route: 064
  22. IRON [Concomitant]
     Dosage: DOSAGE FORM: TABLET
     Route: 064
  23. PRENATAL VITAMINS [Concomitant]
     Dosage: DOSAGE FORM: UNSPECIFIED
     Route: 064

REACTIONS (10)
  - Maternal exposure during pregnancy [Recovered/Resolved]
  - Cleft lip [Unknown]
  - Attention deficit/hyperactivity disorder [Unknown]
  - Cleft palate [Unknown]
  - Cardiac valve disease [Unknown]
  - Eustachian tube dysfunction [Unknown]
  - Ear disorder [Unknown]
  - Emotional disorder [Unknown]
  - Cardiac murmur [Unknown]
  - Decreased appetite [Unknown]
